FAERS Safety Report 8584189-9 (Version None)
Quarter: 2012Q3

REPORT INFORMATION
  Report Type: 
  Country: None (occurrence: None)
  Receive Date: 20120810
  Receipt Date: 20120806
  Transmission Date: 20120928
  Serious: Yes (Death)
  Sender: FDA-Public Use
  Company Number: JP-009507513-1208JPN002396

PATIENT

DRUGS (4)
  1. LEVOFLOXACIN [Concomitant]
  2. LUMIGAN [Suspect]
     Indication: OPEN ANGLE GLAUCOMA
     Dosage: 2 GTT, QD
     Route: 047
     Dates: start: 20110330
  3. HYALEIN [Concomitant]
  4. ZIOPTAN [Suspect]
     Dosage: UNK
     Route: 047
     Dates: start: 20101101, end: 20110330

REACTIONS (3)
  - BLADDER CANCER [None]
  - DRUG INEFFECTIVE [None]
  - CONJUNCTIVAL HYPERAEMIA [None]
